FAERS Safety Report 4639455-6 (Version None)
Quarter: 2005Q2

REPORT INFORMATION
  Report Type: 
  Country: None (occurrence: None)
  Receive Date: 20050418
  Receipt Date: 20050401
  Transmission Date: 20051028
  Serious: Yes (Hospitalization)
  Sender: FDA-Public Use
  Company Number: 106314ISR

PATIENT
  Age: 53 Year
  Sex: Male

DRUGS (7)
  1. METHOTREXATE [Suspect]
     Indication: LYMPHOMA
     Dosage: 15 MILLIGRAM; INTRATHECAL
     Route: 037
     Dates: start: 20050204, end: 20050204
  2. BLEOMYCIN [Suspect]
     Indication: LYMPHOMA
     Dosage: 10 MILLIGRAM; INTRAVENOUS (NOS)
     Route: 042
     Dates: start: 20050204, end: 20050208
  3. CYCLOPHOSPHAMIDE [Suspect]
     Indication: LYMPHOMA
     Dosage: 2.4 GRAM, INTRAVENOUS (NOS)
     Route: 042
     Dates: start: 20050204, end: 20050204
  4. VINDESINE SULFATE [Suspect]
     Indication: LYMPHOMA
     Dosage: 4 MILLIGRAM; INTRAVENOUS (NOS)
     Route: 042
     Dates: start: 20050204, end: 20050204
  5. MABTHERA (RITUXIMAB) [Suspect]
     Indication: LYMPHOMA
     Dosage: 750 MILLIGRAM; INTRAMUSCULAR
     Route: 030
     Dates: start: 20050204, end: 20050204
  6. DOXORUBICIN HCL [Suspect]
     Indication: LYMPHOMA
     Dosage: 150 MILLIGRAM; INTRAVENOUS (NOS)
     Route: 042
     Dates: start: 20050204, end: 20050204
  7. PREDNISONE TAB [Concomitant]

REACTIONS (2)
  - PNEUMOCYSTIS JIROVECI PNEUMONIA [None]
  - PO2 DECREASED [None]
